FAERS Safety Report 6638167-7 (Version None)
Quarter: 2010Q1

REPORT INFORMATION
  Report Type: 
  Country: None (occurrence: None)
  Receive Date: 20100315
  Receipt Date: 20100315
  Transmission Date: 20100710
  Serious: Yes (Life-Threatening, Hospitalization, Other)
  Sender: FDA-Public Use
  Company Number: None

PATIENT
  Age: 75 Year
  Sex: Male
  Weight: 90 kg

DRUGS (2)
  1. ENOXAPARIN SODIUM [Suspect]
     Indication: ATRIAL FIBRILLATION
     Dosage: 80 MG BID SQ
     Route: 058
     Dates: start: 20091125, end: 20091201
  2. WARFARIN SODIUM [Suspect]
     Indication: ATRIAL FIBRILLATION
     Dosage: 80 MG BID SQ
     Route: 058
     Dates: start: 20091125, end: 20091201

REACTIONS (4)
  - BRAIN MASS [None]
  - GLIOBLASTOMA [None]
  - HAEMORRHAGE INTRACRANIAL [None]
  - METASTASIS [None]
